FAERS Safety Report 17430409 (Version 1)
Quarter: 2020Q1

REPORT INFORMATION
  Report Type: Spontaneous
  Country: US (occurrence: US)
  Receive Date: 20200216
  Receipt Date: 20200216
  Transmission Date: 20200409
  Serious: Yes (Other)
  Sender: FDA-Public Use
  Company Number: None

PATIENT
  Age: 54 Year
  Sex: Female
  Weight: 67.5 kg

DRUGS (4)
  1. BELVIQ [Suspect]
     Active Substance: LORCASERIN HYDROCHLORIDE
     Indication: SEIZURE
     Dosage: ?          QUANTITY:3 TABLET(S);?
     Route: 048
     Dates: start: 20180501, end: 20200216
  2. ONFI [Concomitant]
     Active Substance: CLOBAZAM
  3. VITAMIN D [Concomitant]
     Active Substance: VITAMIN D NOS
  4. LAMICTAL XR [Concomitant]
     Active Substance: LAMOTRIGINE

REACTIONS (2)
  - Epilepsy [None]
  - Aura [None]

NARRATIVE: CASE EVENT DATE: 20200216
